FAERS Safety Report 9419663 (Version 2)
Quarter: 2013Q3

REPORT INFORMATION
  Report Type: Spontaneous
  Country: BE (occurrence: None)
  Receive Date: 20130723
  Receipt Date: 20130802
  Transmission Date: 20140515
  Serious: Yes (Death)
  Sender: FDA-Public Use
  Company Number: 2013BE002012

PATIENT
  Age: 34 Year
  Sex: Male
  Weight: 76 kg

DRUGS (7)
  1. PONATINIB (AP24534) TABLET [Suspect]
     Indication: CHRONIC MYELOID LEUKAEMIA
     Route: 048
     Dates: start: 201208, end: 20130604
  2. NOXAFIL (POSACONAZOLE) [Concomitant]
  3. OXYCONTIN (OXYCODONE HYDROCHLORIDE0 [Concomitant]
  4. OXYNORM (OXYCODONE HYDROCHLORIDE) (OXYCODONE HYDROCHLORIDE) [Concomitant]
  5. D-CURE (COLECALCIFEROL) [Concomitant]
  6. ZANTAC (RANITIDINE HYDROCHLORIDE) [Concomitant]
  7. ZOVIRAX (ACICLOVIR) [Concomitant]

REACTIONS (7)
  - Septic shock [None]
  - Chest pain [None]
  - Malaise [None]
  - Renal failure acute [None]
  - Hepatitis [None]
  - Pericardial effusion [None]
  - Cardiac arrest [None]
